FAERS Safety Report 9764678 (Version 4)
Quarter: 2017Q2

REPORT INFORMATION
  Report Type: Report from Study
  Country: US (occurrence: US)
  Receive Date: 20131217
  Receipt Date: 20170505
  Transmission Date: 20170830
  Serious: Yes (Hospitalization, Other)
  Sender: FDA-Public Use
  Company Number: US-SA-2013SA109964

PATIENT
  Sex: Male

DRUGS (2)
  1. AUBAGIO [Suspect]
     Active Substance: TERIFLUNOMIDE
     Indication: MULTIPLE SCLEROSIS
     Dosage: TAKEN FROM: ABOUT 3 WEEKS AGO
     Route: 048
     Dates: start: 20131003
  2. AUBAGIO [Suspect]
     Active Substance: TERIFLUNOMIDE
     Indication: MULTIPLE SCLEROSIS
     Dosage: TAKEN FROM: ABOUT 3 WEEKS AGO
     Route: 048
     Dates: start: 20131104

REACTIONS (12)
  - Nail growth abnormal [Unknown]
  - Cellulitis [Unknown]
  - Blepharospasm [Unknown]
  - Hair growth abnormal [Unknown]
  - Balance disorder [Unknown]
  - Arthropathy [Unknown]
  - Pyrexia [Not Recovered/Not Resolved]
  - White blood cell count decreased [Not Recovered/Not Resolved]
  - Multiple sclerosis relapse [Unknown]
  - Somnolence [Unknown]
  - Decreased immune responsiveness [Unknown]
  - Back pain [Not Recovered/Not Resolved]
